FAERS Safety Report 16687927 (Version 1)
Quarter: 2019Q3

REPORT INFORMATION
  Report Type: Spontaneous
  Country: US (occurrence: US)
  Receive Date: 20190809
  Receipt Date: 20190809
  Transmission Date: 20191004
  Serious: Yes (Hospitalization)
  Sender: FDA-Public Use
  Company Number: US-SCIEGEN PHARMACEUTICALS INC-2019SCILIT00236

PATIENT
  Age: 3 Year
  Sex: Male

DRUGS (2)
  1. ARIPIPRAZOLE. [Suspect]
     Active Substance: ARIPIPRAZOLE
  2. SODIUM CHLORIDE. [Interacting]
     Active Substance: SODIUM CHLORIDE

REACTIONS (11)
  - Muscle twitching [Recovered/Resolved]
  - Ataxia [Recovered/Resolved]
  - Tongue movement disturbance [Recovered/Resolved]
  - Hypokalaemia [Recovered/Resolved]
  - Slow speech [Recovered/Resolved]
  - Blood pressure systolic decreased [Recovered/Resolved]
  - Somnolence [Recovered/Resolved]
  - Lethargy [Recovered/Resolved]
  - Trismus [Recovered/Resolved]
  - Bradycardia [Recovered/Resolved]
  - Accidental overdose [Recovered/Resolved]
